FAERS Safety Report 8962253 (Version 1)
Quarter: 2012Q4

REPORT INFORMATION
  Report Type: 
  Country: NL (occurrence: NL)
  Receive Date: 20121212
  Receipt Date: 20121212
  Transmission Date: 20130627
  Serious: Yes (Hospitalization)
  Sender: FDA-Public Use
  Company Number: NL-PFIZER INC-2012309206

PATIENT
  Age: 32 Year
  Sex: Female
  Weight: 71.5 kg

DRUGS (5)
  1. GENOTROPIN [Suspect]
     Indication: GROWTH HORMONE DEFICIENCY
     Dosage: 0.7 mg, 1x/day,7 injections/week
     Route: 058
     Dates: start: 20030424
  2. LEVOTHYROXINE SODIUM [Concomitant]
     Indication: UNSPECIFIED HYPOTHYROIDISM
     Dosage: UNK
     Dates: start: 19951025
  3. MERCILON [Concomitant]
     Indication: LUTEINISING HORMONE DEFICIENCY
     Dosage: UNK
     Dates: start: 19980701
  4. MERCILON [Concomitant]
     Indication: FOLLICLE-STIMULATING HORMONE DEFICIENCY
  5. MERCILON [Concomitant]
     Indication: HYPOGONADISM FEMALE

REACTIONS (1)
  - Arthropathy [Unknown]
